FAERS Safety Report 18177387 (Version 3)
Quarter: 2024Q2

REPORT INFORMATION
  Report Type: Report from Study
  Country: FR (occurrence: FR)
  Receive Date: 20200821
  Receipt Date: 20240617
  Transmission Date: 20240716
  Serious: Yes (Hospitalization, Other)
  Sender: FDA-Public Use
  Company Number: FR-AUROBINDO-AUR-APL-2013-10847

PATIENT
  Age: 70 Year
  Sex: Female

DRUGS (2)
  1. CEFPODOXIME [Suspect]
     Active Substance: CEFPODOXIME
     Indication: Product used for unknown indication
     Dosage: UNK
     Route: 065
  2. TIAPROFENIC ACID [Suspect]
     Active Substance: TIAPROFENIC ACID
     Indication: Product used for unknown indication
     Dosage: UNK
     Route: 065

REACTIONS (7)
  - Acute generalised exanthematous pustulosis [Recovered/Resolved with Sequelae]
  - Renal failure [Recovered/Resolved]
  - Nikolsky^s sign [Recovered/Resolved]
  - Skin exfoliation [Recovered/Resolved]
  - C-reactive protein increased [Recovered/Resolved]
  - Blood creatinine abnormal [Recovered/Resolved]
  - Neutrophil count increased [Recovered/Resolved]
